FAERS Safety Report 6097310-1 (Version None)
Quarter: 2009Q1

REPORT INFORMATION
  Report Type: 
  Country: None (occurrence: None)
  Receive Date: 20090227
  Receipt Date: 20090220
  Transmission Date: 20090719
  Serious: Yes (Hospitalization, Other)
  Sender: FDA-Public Use
  Company Number: US-ELI_LILLY_AND_COMPANY-US200902005255

PATIENT
  Age: 55 Year
  Sex: Female

DRUGS (17)
  1. GEMZAR [Suspect]
     Indication: OVARIAN CANCER
     Dosage: 1000 MG/M2, OTHER
     Route: 042
     Dates: start: 20081105
  2. GEMZAR [Suspect]
     Dosage: 800 MG/M2, OTHER
     Route: 042
  3. CARBOPLATIN [Concomitant]
     Indication: OVARIAN CANCER
  4. AVASTIN [Concomitant]
     Indication: OVARIAN CANCER
  5. DECADRON                                /CAN/ [Concomitant]
     Route: 048
  6. DECADRON                                /CAN/ [Concomitant]
     Route: 042
  7. XYZAL [Concomitant]
     Indication: MULTIPLE ALLERGIES
  8. SINGULAIR [Concomitant]
  9. ADVAIR DISKUS 100/50 [Concomitant]
     Route: 055
  10. NASAL SPRAY [Concomitant]
  11. VITAMIN B6 [Concomitant]
     Dosage: 200 MG, DAILY (1/D)
  12. MULTIPLE VITAMINS [Concomitant]
     Dosage: UNK, DAILY (1/D)
  13. GLUCOSAMINE [Concomitant]
  14. IMITREX [Concomitant]
     Indication: MIGRAINE
  15. XANAX [Concomitant]
  16. ALOXI [Concomitant]
     Indication: NAUSEA
  17. PHENERGAN [Concomitant]
     Indication: NAUSEA

REACTIONS (14)
  - CHILLS [None]
  - DEVICE RELATED INFECTION [None]
  - FATIGUE [None]
  - INFUSION SITE ERYTHEMA [None]
  - INFUSION SITE PAIN [None]
  - INFUSION SITE SWELLING [None]
  - INSOMNIA [None]
  - LYMPHADENOPATHY [None]
  - MALAISE [None]
  - NAUSEA [None]
  - PLEURAL EFFUSION [None]
  - PYREXIA [None]
  - STAPHYLOCOCCAL INFECTION [None]
  - WHITE BLOOD CELL COUNT INCREASED [None]
